FAERS Safety Report 9587553 (Version 1)
Quarter: 2013Q4

REPORT INFORMATION
  Report Type: Spontaneous
  Country: US (occurrence: US)
  Receive Date: 20131003
  Receipt Date: 20131003
  Transmission Date: 20140711
  Serious: Yes (Hospitalization)
  Sender: FDA-Public Use
  Company Number: US-ENDO PHARMACEUTICALS INC.-HCDA20130138

PATIENT
  Age: 60 Year
  Sex: Male
  Weight: 286.02 kg

DRUGS (2)
  1. HYDROCODONE BITARTRATE / ACETAMINOPHEN [Suspect]
     Indication: PAIN
     Dosage: 10/325MG
     Route: 048
     Dates: start: 2011, end: 201308
  2. HYDROCODONE BITARTRATE / ACETAMINOPHEN [Suspect]
     Indication: ROAD TRAFFIC ACCIDENT
     Dosage: 10/325MG
     Route: 048
     Dates: start: 201309

REACTIONS (2)
  - Cellulitis [Recovered/Resolved]
  - Fluid overload [Recovered/Resolved]
